FAERS Safety Report 15048011 (Version 1)
Quarter: 2018Q2

REPORT INFORMATION
  Report Type: Spontaneous
  Country: GB (occurrence: GB)
  Receive Date: 20180622
  Receipt Date: 20180622
  Transmission Date: 20180711
  Serious: Yes (Death, Other)
  Sender: FDA-Public Use
  Company Number: GB-TEVA-2018-GB-910684

PATIENT
  Age: 76 Year
  Sex: Female

DRUGS (4)
  1. BETAMETHASONE. [Concomitant]
     Active Substance: BETAMETHASONE
     Dosage: AS DIRECTED
     Dates: start: 20180206
  2. TAMIFLU [Concomitant]
     Active Substance: OSELTAMIVIR PHOSPHATE
     Dosage: 150 MILLIGRAM DAILY;
     Dates: start: 20180122
  3. ARIPIPRAZOLE. [Suspect]
     Active Substance: ARIPIPRAZOLE
     Indication: AGITATED DEPRESSION
     Route: 065
  4. MEMANTINE. [Concomitant]
     Active Substance: MEMANTINE
     Dosage: 20 MILLIGRAM DAILY;
     Dates: start: 20180205

REACTIONS (1)
  - Cerebral infarction [Fatal]

NARRATIVE: CASE EVENT DATE: 20180317
